FAERS Safety Report 4648537-4 (Version None)
Quarter: 2005Q2

REPORT INFORMATION
  Report Type: 
  Country: None (occurrence: None)
  Receive Date: 20050427
  Receipt Date: 20050411
  Transmission Date: 20051028
  Serious: Yes (Hospitalization)
  Sender: FDA-Public Use
  Company Number: B0377943A

PATIENT
  Age: 67 Year
  Sex: Male

DRUGS (5)
  1. ZANTAC [Suspect]
     Indication: GASTROOESOPHAGEAL REFLUX DISEASE
     Dosage: 300 MG/ PER DAY / UNK
  2. AZATHIOPRINE [Suspect]
     Indication: CUTANEOUS LUPUS ERYTHEMATOSUS
     Dosage: 100 MG/ PER DAY /
  3. METHYLPREDNISOLONE [Concomitant]
  4. MOMETASONE [Concomitant]
  5. BETAMETHASONE [Concomitant]

REACTIONS (5)
  - HEPATITIS CHOLESTATIC [None]
  - HEPATOCELLULAR DAMAGE [None]
  - HEPATOTOXICITY [None]
  - LEUKOCYTOSIS [None]
  - PLATELET COUNT DECREASED [None]
